FAERS Safety Report 8500153-X (Version None)
Quarter: 2012Q3

REPORT INFORMATION
  Report Type: 
  Country: None (occurrence: None)
  Receive Date: 20120710
  Receipt Date: 20120704
  Transmission Date: 20120928
  Serious: Yes (Other)
  Sender: FDA-Public Use
  Company Number: BR-PFIZER INC-2012128605

PATIENT
  Age: 72 Year
  Sex: Male
  Weight: 83 kg

DRUGS (4)
  1. METOCLOPRAMIDE HYDROCHLORIDE [Concomitant]
     Dosage: UNK
  2. SUTENT [Suspect]
     Indication: RENAL CELL CARCINOMA
     Dosage: 50 MG, 1X/DAY FIRST CYCLE
     Route: 048
     Dates: start: 20120514, end: 20120101
  3. LOPERAMIDE HCL [Concomitant]
     Dosage: UNK, 1X/DAY
  4. OMEPRAZOLE [Concomitant]
     Dosage: UNK

REACTIONS (16)
  - MALAISE [None]
  - DECREASED APPETITE [None]
  - OROPHARYNGEAL PAIN [None]
  - RETCHING [None]
  - WEIGHT DECREASED [None]
  - SLEEP DISORDER [None]
  - YELLOW SKIN [None]
  - OCULAR ICTERUS [None]
  - DYSGEUSIA [None]
  - VOMITING [None]
  - SWELLING [None]
  - EAR PAIN [None]
  - DRUG-INDUCED LIVER INJURY [None]
  - SWELLING FACE [None]
  - DYSPHAGIA [None]
  - DIARRHOEA [None]
